FAERS Safety Report 4814880-9 (Version None)
Quarter: 2005Q4

REPORT INFORMATION
  Report Type: 
  Country: None (occurrence: None)
  Receive Date: 20051028
  Receipt Date: 20050729
  Transmission Date: 20060501
  Serious: Yes (Hospitalization)
  Sender: FDA-Public Use
  Company Number: DK-ROCHE-412515

PATIENT
  Age: 73 Year
  Sex: Male
  Weight: 72.4 kg

DRUGS (5)
  1. CAPECITABINE [Suspect]
     Dosage: GIVEN FROM DAYS ONE TO FOURTEEN OF A THREE WEEK CYCLE.
     Route: 048
     Dates: start: 20050701, end: 20050728
  2. CAPECITABINE [Suspect]
     Dosage: GIVEN FROM DAYS ONE TO FOURTEEN OF A THREE WEEK CYCLE AS PER PROTOCOL.
     Route: 048
     Dates: start: 20050811
  3. OXALIPLATIN [Suspect]
     Route: 042
     Dates: start: 20050701, end: 20050728
  4. OXALIPLATIN [Suspect]
     Route: 042
     Dates: start: 20050811
  5. INNOHEP [Concomitant]
     Dates: start: 20050930

REACTIONS (1)
  - RETINAL DETACHMENT [None]
